FAERS Safety Report 10568209 (Version 1)
Quarter: 2014Q4

REPORT INFORMATION
  Report Type: Spontaneous
  Country: PT (occurrence: None)
  Receive Date: 20141104
  Receipt Date: 20141104
  Transmission Date: 20150529
  Serious: Yes (Other)
  Sender: FDA-Public Use
  Company Number: PT-017500

PATIENT
  Age: 36 Year
  Sex: Female

DRUGS (3)
  1. MENOPUR [Suspect]
     Active Substance: FOLLICLE STIMULATING HORMONE BETA POLYPEPTIDE\LUTROPIN ALFA
     Indication: INFERTILITY
     Dosage: 300 IU, TOTAL SUBSCUTANEOUS
     Route: 058
     Dates: start: 20140914, end: 20140915
  2. DECAPEPTYL [Concomitant]
     Active Substance: TRIPTORELIN ACETATE
  3. ACFOL [Concomitant]
     Active Substance: FOLIC ACID

REACTIONS (4)
  - Face oedema [None]
  - Drug hypersensitivity [None]
  - Ovarian cyst [None]
  - Eye oedema [None]

NARRATIVE: CASE EVENT DATE: 20140914
